FAERS Safety Report 5818589-4 (Version None)
Quarter: 2008Q3

REPORT INFORMATION
  Report Type: 
  Country: None (occurrence: None)
  Receive Date: 20080717
  Receipt Date: 20080711
  Transmission Date: 20090109
  Serious: Yes (Other)
  Sender: FDA-Public Use
  Company Number: 163-20785-08021630

PATIENT
  Age: 58 Year
  Sex: Male

DRUGS (1)
  1. THALOMID [Suspect]
     Indication: PROSTATE CANCER
     Dosage: 50 MG, 1 IN 1 D, ORAL  ]
     Route: 048
     Dates: start: 20070104, end: 20071201

REACTIONS (2)
  - NEUROPATHY PERIPHERAL [None]
  - TRANSIENT ISCHAEMIC ATTACK [None]
